FAERS Safety Report 23693323 (Version 2)
Quarter: 2024Q2

REPORT INFORMATION
  Report Type: Report from Study
  Country: TW (occurrence: None)
  Receive Date: 20240401
  Receipt Date: 20240419
  Transmission Date: 20240715
  Serious: Yes (Death, Hospitalization)
  Sender: FDA-Public Use
  Company Number: 2023A240725

PATIENT
  Age: 867 Month
  Sex: Male

DRUGS (2)
  1. IMFINZI [Suspect]
     Active Substance: DURVALUMAB
     Indication: Cholangiocarcinoma
     Route: 041
     Dates: start: 20230510
  2. MORPHINE [Concomitant]
     Active Substance: MORPHINE

REACTIONS (7)
  - Arrhythmia [Fatal]
  - Blood pressure decreased [Fatal]
  - Heart rate decreased [Fatal]
  - Decreased appetite [Fatal]
  - Asthenia [Fatal]
  - Tumour inflammation [Fatal]
  - Pyrexia [Unknown]

NARRATIVE: CASE EVENT DATE: 20181101
